FAERS Safety Report 7538917-1 (Version None)
Quarter: 2011Q2

REPORT INFORMATION
  Report Type: 
  Country: None (occurrence: None)
  Receive Date: 20110603
  Receipt Date: 20110524
  Transmission Date: 20111010
  Serious: Yes (Death)
  Sender: FDA-Public Use
  Company Number: 1000021270

PATIENT
  Sex: Male

DRUGS (1)
  1. ROFLUMILAST (ROFLUMILAST) (500 MICROGRAM, TABLETS) [Suspect]
     Dosage: ORAL
     Route: 048
     Dates: start: 20110101, end: 20110101

REACTIONS (3)
  - GENERAL PHYSICAL CONDITION ABNORMAL [None]
  - CONDITION AGGRAVATED [None]
  - SENILE DEMENTIA [None]
